FAERS Safety Report 10332649 (Version 1)
Quarter: 2014Q3

REPORT INFORMATION
  Report Type: Spontaneous
  Country: US (occurrence: US)
  Receive Date: 20140722
  Receipt Date: 20140722
  Transmission Date: 20150326
  Serious: No
  Sender: FDA-Public Use
  Company Number: US-ASTRAZENECA-2013SE82099

PATIENT
  Age: 21853 Day
  Sex: Female
  Weight: 59 kg

DRUGS (5)
  1. SEROQUEL [Suspect]
     Active Substance: QUETIAPINE FUMARATE
     Route: 048
     Dates: start: 20131026, end: 20131027
  2. LITHIUM [Concomitant]
     Active Substance: LITHIUM CARBONATE
     Route: 048
     Dates: start: 1992
  3. SEROQUEL [Suspect]
     Active Substance: QUETIAPINE FUMARATE
     Route: 048
     Dates: start: 20121011, end: 20121015
  4. PROGESTROL [Concomitant]
     Indication: HORMONE REPLACEMENT THERAPY
     Dosage: 1/8 TSP BID
     Route: 048
     Dates: start: 2009
  5. SEROQUEL [Suspect]
     Active Substance: QUETIAPINE FUMARATE
     Route: 048
     Dates: start: 20131027

REACTIONS (5)
  - Drug ineffective [Unknown]
  - Vasodilatation [Unknown]
  - Nervous system disorder [Unknown]
  - Varicose vein [Unknown]
  - Vein discolouration [Unknown]

NARRATIVE: CASE EVENT DATE: 20130404
